FAERS Safety Report 6349879-7 (Version None)
Quarter: 2009Q3

REPORT INFORMATION
  Report Type: 
  Country: None (occurrence: None)
  Receive Date: 20090911
  Receipt Date: 20090904
  Transmission Date: 20100115
  Serious: Yes (Death, Hospitalization)
  Sender: FDA-Public Use
  Company Number: US-AMGEN-US359847

PATIENT
  Sex: Male

DRUGS (13)
  1. NPLATE [Suspect]
     Indication: IDIOPATHIC THROMBOCYTOPENIC PURPURA
     Route: 058
     Dates: start: 20090422, end: 20090422
  2. CORTICOSTEROID NOS [Concomitant]
  3. SOLU-MEDROL [Concomitant]
  4. CYCLOSPORINE [Concomitant]
  5. CYMBALTA [Concomitant]
  6. DILAUDID [Concomitant]
  7. IMIPENEM [Concomitant]
  8. ATOVAQUONE [Concomitant]
  9. (CASPOFUNGIN ACETATE) FOR INJECTION [Concomitant]
  10. VORICONAZOLE [Concomitant]
  11. TOBRAMYCIN [Concomitant]
  12. BLOOD CELLS, PACKED HUMAN [Concomitant]
  13. PLATELETS [Concomitant]

REACTIONS (2)
  - DRUG INEFFECTIVE [None]
  - PULMONARY HAEMORRHAGE [None]
